FAERS Safety Report 6400883-X (Version None)
Quarter: 2009Q4

REPORT INFORMATION
  Report Type: 
  Country: None (occurrence: None)
  Receive Date: 20091009
  Receipt Date: 20091002
  Transmission Date: 20100525
  Serious: Yes (Other)
  Sender: FDA-Public Use
  Company Number: 394999

PATIENT
  Age: 36 Year
  Sex: Female

DRUGS (2)
  1. LIDOCAINE HCL [Suspect]
     Indication: ANAESTHESIA
     Dosage: 50 ML, INTRAVENOUS
     Route: 042
  2. LIDOCAINE HCL [Suspect]
     Indication: ANAESTHESIA
     Dosage: 5 ML

REACTIONS (7)
  - BLOOD PRESSURE DECREASED [None]
  - DRUG EXPOSURE DURING PREGNANCY [None]
  - DRUG TOXICITY [None]
  - DYSGEUSIA [None]
  - HYPERVENTILATION [None]
  - SINUS TACHYCARDIA [None]
  - TINNITUS [None]
